FAERS Safety Report 22916645 (Version 2)
Quarter: 2023Q4

REPORT INFORMATION
  Report Type: Spontaneous
  Country: JP (occurrence: None)
  Receive Date: 20230907
  Receipt Date: 20231109
  Transmission Date: 20240109
  Serious: No
  Sender: FDA-Public Use
  Company Number: 2023A199438

PATIENT
  Age: 68 Year
  Sex: Male

DRUGS (3)
  1. LYNPARZA [Suspect]
     Active Substance: OLAPARIB
     Indication: Pancreatic carcinoma
     Route: 048
     Dates: start: 20210615, end: 20220804
  2. GEM (GEMCITABINE) [Concomitant]
     Dosage: ALBUMIN SUSPENSION TYPE
  3. NAB (PACLITAXEL) [Concomitant]

REACTIONS (1)
  - No adverse event [Unknown]
